FAERS Safety Report 11463936 (Version 1)
Quarter: 2015Q3

REPORT INFORMATION
  Report Type: Spontaneous
  Country: US (occurrence: US)
  Receive Date: 20150831
  Receipt Date: 20150831
  Transmission Date: 20151125
  Serious: No
  Sender: FDA-Public Use
  Company Number: US-ELI_LILLY_AND_COMPANY-US201105005262

PATIENT
  Age: 47 Year
  Sex: Female

DRUGS (5)
  1. CYMBALTA [Suspect]
     Active Substance: DULOXETINE HYDROCHLORIDE
     Indication: DEPRESSION
     Dosage: 60 MG, QD
     Dates: end: 201009
  2. PREDNISONE. [Concomitant]
     Active Substance: PREDNISONE
  3. LUNESTA [Concomitant]
     Active Substance: ESZOPICLONE
  4. COPAXONE [Concomitant]
     Active Substance: GLATIRAMER ACETATE
  5. CYMBALTA [Suspect]
     Active Substance: DULOXETINE HYDROCHLORIDE
     Dosage: 30 MG, QD
     Dates: start: 201010

REACTIONS (6)
  - Emotional poverty [Unknown]
  - Road traffic accident [Recovered/Resolved]
  - Confusional state [Unknown]
  - Drug withdrawal syndrome [Unknown]
  - Dissociation [Unknown]
  - Intentional product misuse [Recovered/Resolved]

NARRATIVE: CASE EVENT DATE: 201009
